FAERS Safety Report 18675329 (Version 1)
Quarter: 2020Q4

REPORT INFORMATION
  Report Type: Spontaneous
  Country: US (occurrence: US)
  Receive Date: 20201229
  Receipt Date: 20201229
  Transmission Date: 20210114
  Serious: Yes (Hospitalization, Other)
  Sender: FDA-Public Use
  Company Number: US-ACCORD-212729

PATIENT
  Age: 16 Year
  Sex: Female

DRUGS (3)
  1. MYCOPHENOLATE MOFETIL/MYCOPHENOLATE SODIUM/MYCOPHENOLIC ACID [Suspect]
     Active Substance: MYCOPHENOLIC ACID
     Indication: IMMUNOSUPPRESSANT DRUG THERAPY
  2. TACROLIMUS. [Suspect]
     Active Substance: TACROLIMUS
     Indication: IMMUNOSUPPRESSANT DRUG THERAPY
  3. PREDNISONE. [Suspect]
     Active Substance: PREDNISONE
     Indication: IMMUNOSUPPRESSANT DRUG THERAPY

REACTIONS (10)
  - Hyperammonaemic encephalopathy [Recovered/Resolved]
  - Arthritis [Recovered/Resolved]
  - Complications of transplanted kidney [Unknown]
  - Acute kidney injury [Unknown]
  - Polyarthritis [Recovered/Resolved]
  - Pyelonephritis acute [Unknown]
  - Ureaplasma infection [Recovered/Resolved]
  - Renal abscess [Unknown]
  - Systemic bacterial infection [Recovered/Resolved]
  - Tubulointerstitial nephritis [Unknown]
